FAERS Safety Report 4982131-0 (Version None)
Quarter: 2006Q2

REPORT INFORMATION
  Report Type: 
  Country: None (occurrence: None)
  Receive Date: 20060419
  Receipt Date: 20060328
  Transmission Date: 20061013
  Serious: Yes (Other)
  Sender: FDA-Public Use
  Company Number: US200603006660

PATIENT
  Age: 59 Year
  Sex: Female

DRUGS (4)
  1. ALIMTA [Suspect]
     Indication: NASOPHARYNGEAL CANCER
     Dosage: 500 MG/M2
     Dates: start: 20060306
  2. CYANOCOBALAMIN [Concomitant]
  3. FOLIC ACID [Concomitant]
  4. DECADRON [Concomitant]

REACTIONS (2)
  - THROMBOCYTOPENIA [None]
  - VAGINAL HAEMORRHAGE [None]
